FAERS Safety Report 9868754 (Version 1)
Quarter: 2014Q1

REPORT INFORMATION
  Report Type: Report from Study
  Country: CN (occurrence: CN)
  Receive Date: 20140204
  Receipt Date: 20140204
  Transmission Date: 20141002
  Serious: Yes (Other)
  Sender: FDA-Public Use
  Company Number: CN-ELI_LILLY_AND_COMPANY-CN201401008689

PATIENT
  Sex: Male
  Weight: 61 kg

DRUGS (6)
  1. ATOMOXETINE HYDROCHLORIDE [Suspect]
     Indication: PRODUCT USED FOR UNKNOWN INDICATION
     Dosage: 10 MG, UNK
     Route: 065
  2. ATOMOXETINE HYDROCHLORIDE [Suspect]
     Dosage: 20 MG, UNK
     Route: 065
  3. ATOMOXETINE HYDROCHLORIDE [Suspect]
     Dosage: 40 MG, UNK
  4. ATOMOXETINE HYDROCHLORIDE [Suspect]
     Dosage: 50 MG, UNK
  5. ATOMOXETINE HYDROCHLORIDE [Suspect]
     Dosage: 40 MG, UNK
  6. ATOMOXETINE HYDROCHLORIDE [Suspect]
     Dosage: 1 DF, UNK
     Dates: start: 20111125

REACTIONS (3)
  - Suicidal ideation [Unknown]
  - Decreased appetite [Unknown]
  - Attention deficit/hyperactivity disorder [Unknown]
